FAERS Safety Report 25499075 (Version 1)
Quarter: 2025Q2

REPORT INFORMATION
  Report Type: Spontaneous
  Country: US (occurrence: None)
  Receive Date: 20250630
  Receipt Date: 20250630
  Transmission Date: 20250716
  Serious: No
  Sender: FDA-CTU
  Company Number: None

PATIENT
  Age: 42 Year
  Sex: Male

DRUGS (10)
  1. CREON [Suspect]
     Active Substance: PANCRELIPASE AMYLASE\PANCRELIPASE LIPASE\PANCRELIPASE PROTEASE
     Indication: Cystic fibrosis
     Route: 048
     Dates: start: 20240615
  2. JARDIANCE [Concomitant]
     Active Substance: EMPAGLIFLOZIN
  3. PREDNISONE [Concomitant]
     Active Substance: PREDNISONE
  4. URSODIOL [Concomitant]
     Active Substance: URSODIOL
  5. ATENOLOL [Concomitant]
     Active Substance: ATENOLOL
  6. HYDROCHLOROTHIAZIDE [Concomitant]
     Active Substance: HYDROCHLOROTHIAZIDE
  7. LISINOPRIL [Concomitant]
     Active Substance: LISINOPRIL
  8. VITAMINS [Concomitant]
     Active Substance: VITAMINS
  9. VITAMIN A [Concomitant]
     Active Substance: VITAMIN A
  10. VITAMIN D [Concomitant]
     Active Substance: VITAMIN D NOS

REACTIONS (2)
  - Fatigue [None]
  - Dyspnoea [None]

NARRATIVE: CASE EVENT DATE: 20250331
